FAERS Safety Report 9789872 (Version 1)
Quarter: 2013Q4

REPORT INFORMATION
  Report Type: Spontaneous
  Country: US (occurrence: None)
  Receive Date: 20131227
  Receipt Date: 20131227
  Transmission Date: 20140711
  Serious: Yes (Hospitalization)
  Sender: FDA-Public Use
  Company Number: 2013-004029

PATIENT
  Age: 67 Year
  Sex: Female

DRUGS (3)
  1. ESTRACE CREAM, 0.01% [Suspect]
     Indication: VAGINAL DISORDER
     Dosage: ONE FINGER FULL DAILY, VAGINAL
     Route: 067
     Dates: start: 201309, end: 20131213
  2. MULTIVIT (VITAMINS NOS) [Concomitant]
  3. B12 /00056201/ (CYANOCOBALAMIN)? [Concomitant]

REACTIONS (8)
  - Electrocardiogram abnormal [None]
  - Nausea [None]
  - Myalgia [None]
  - Breast tenderness [None]
  - Chest discomfort [None]
  - Decreased appetite [None]
  - Dyspepsia [None]
  - Headache [None]
